FAERS Safety Report 22264292 (Version 2)
Quarter: 2023Q2

REPORT INFORMATION
  Report Type: Spontaneous
  Country: FR (occurrence: FR)
  Receive Date: 20230428
  Receipt Date: 20230526
  Transmission Date: 20230721
  Serious: No
  Sender: FDA-Public Use
  Company Number: FR-PFIZER INC-202300160930

PATIENT
  Age: 46 Year
  Sex: Male

DRUGS (1)
  1. FILGRASTIM [Suspect]
     Active Substance: FILGRASTIM
     Dosage: UNK

REACTIONS (2)
  - Device use error [Unknown]
  - Device issue [Unknown]

NARRATIVE: CASE EVENT DATE: 20230416
